FAERS Safety Report 24071332 (Version 1)
Quarter: 2024Q3

REPORT INFORMATION
  Report Type: Report from Study
  Country: DE (occurrence: DE)
  Receive Date: 20240710
  Receipt Date: 20240710
  Transmission Date: 20241017
  Serious: No
  Sender: ROCHE
  Company Number: DE-ROCHE-3303049

PATIENT
  Age: 10 Year
  Sex: Female
  Weight: 32.0 kg

DRUGS (15)
  1. EVRYSDI [Suspect]
     Active Substance: RISDIPLAM
     Indication: Spinal muscular atrophy
     Dosage: LAST DOSE 13/DEC/2022
     Route: 048
     Dates: start: 20210630
  2. EVRYSDI [Suspect]
     Active Substance: RISDIPLAM
     Dosage: LAST DOSE 06/SEP/2023, 24/APR/2024
     Route: 048
     Dates: start: 20210701
  3. MOMETASONE [Concomitant]
     Active Substance: MOMETASONE
     Dates: start: 20220404
  4. MOMETASONE [Concomitant]
     Active Substance: MOMETASONE
     Dates: start: 20220804
  5. NYSTATIN [Concomitant]
     Active Substance: NYSTATIN
     Dates: start: 2020
  6. SORBITOL [Concomitant]
     Active Substance: SORBITOL
     Dates: start: 2017
  7. LACTULOSE [Concomitant]
     Active Substance: LACTULOSE
     Dates: start: 2017
  8. LACTULOSE [Concomitant]
     Active Substance: LACTULOSE
     Dates: start: 20170829
  9. DIMETHICONE [Concomitant]
     Active Substance: DIMETHICONE
     Dates: start: 2020
  10. DIMETHICONE [Concomitant]
     Active Substance: DIMETHICONE
     Dates: start: 202011
  11. CHOLECALCIFEROL [Concomitant]
     Active Substance: CHOLECALCIFEROL
     Dates: start: 2016
  12. SORBIT [Concomitant]
     Dates: start: 20170829
  13. CALCIDIOL [Concomitant]
     Dates: start: 20160906
  14. ESOMEPRAZOLE [Concomitant]
     Active Substance: ESOMEPRAZOLE
     Dates: start: 2017
  15. IBUPROFEN [Concomitant]
     Active Substance: IBUPROFEN
     Dates: start: 202403

REACTIONS (4)
  - Respiratory tract infection [Recovered/Resolved]
  - Pyrexia [Recovered/Resolved]
  - COVID-19 [Recovered/Resolved]
  - Nasopharyngitis [Recovered/Resolved]

NARRATIVE: CASE EVENT DATE: 20221001
